FAERS Safety Report 5206331-X (Version None)
Quarter: 2006Q4

REPORT INFORMATION
  Report Type: 
  Country: None (occurrence: None)
  Receive Date: 20061031
  Receipt Date: 20060919
  Transmission Date: 20070319
  Serious: No
  Sender: FDA-Public Use
  Company Number: 2006-BP-11028BP

PATIENT

DRUGS (1)
  1. APTIVUS/RITONAVIR CAPSULES (ALL OTHER THERAPEUTIC PRODUCTS) [Suspect]
     Dosage: SEE TEXT, 250 MG/100 MG), PO
     Route: 048

REACTIONS (1)
  - SKIN ODOUR ABNORMAL [None]
